FAERS Safety Report 18058469 (Version 1)
Quarter: 2020Q3

REPORT INFORMATION
  Report Type: Spontaneous
  Country: IT (occurrence: IT)
  Receive Date: 20200723
  Receipt Date: 20200723
  Transmission Date: 20201103
  Serious: Yes (Death)
  Sender: FDA-Public Use
  Company Number: IT-009507513-2007ITA006573

PATIENT
  Age: 68 Year
  Sex: Male
  Weight: 55 kg

DRUGS (3)
  1. ALIMTA [Suspect]
     Active Substance: PEMETREXED DISODIUM
     Dosage: 915 MILLIGRAM
     Route: 042
     Dates: start: 20200526, end: 20200526
  2. KEYTRUDA [Suspect]
     Active Substance: PEMBROLIZUMAB
     Dosage: 100 MILLIGRAM
     Route: 042
     Dates: start: 20200526, end: 20200526
  3. CISPLATIN. [Suspect]
     Active Substance: CISPLATIN
     Dosage: STRENGTH 1MG/ML, 137 MILLIGRAM, CYCLICAL
     Route: 042
     Dates: start: 20200526, end: 20200526

REACTIONS (1)
  - Pancytopenia [Fatal]

NARRATIVE: CASE EVENT DATE: 20200615
